FAERS Safety Report 11761273 (Version 1)
Quarter: 2015Q4

REPORT INFORMATION
  Report Type: Spontaneous
  Country: US (occurrence: US)
  Receive Date: 20151120
  Receipt Date: 20151120
  Transmission Date: 20160304
  Serious: No
  Sender: FDA-Public Use
  Company Number: US-ELI_LILLY_AND_COMPANY-US201210003148

PATIENT
  Age: 61 Year
  Sex: Female
  Weight: 69 kg

DRUGS (5)
  1. SYNTHROID [Concomitant]
     Active Substance: LEVOTHYROXINE SODIUM
     Indication: THYROID DISORDER
     Dosage: UNK, QD
  2. VESICARE [Concomitant]
     Active Substance: SOLIFENACIN SUCCINATE
     Indication: BLADDER DISORDER
     Dosage: UNK, QD
  3. FORTEO [Suspect]
     Active Substance: TERIPARATIDE
     Dosage: 20 UG, QD
     Dates: start: 20121001, end: 20121004
  4. SPIRONOLACTONE. [Concomitant]
     Active Substance: SPIRONOLACTONE
     Dosage: 100 MG, UNK
     Dates: start: 20120921, end: 20120924
  5. FORTEO [Suspect]
     Active Substance: TERIPARATIDE
     Indication: OSTEOPOROSIS
     Dosage: 20 UG, QD
     Dates: start: 20120814, end: 20120924

REACTIONS (22)
  - Dehydration [Unknown]
  - General physical health deterioration [Unknown]
  - Blood lactate dehydrogenase decreased [Not Recovered/Not Resolved]
  - Hepatic function abnormal [Unknown]
  - Weight increased [Not Recovered/Not Resolved]
  - Renal impairment [Unknown]
  - Blood urea increased [Not Recovered/Not Resolved]
  - Blood urea nitrogen/creatinine ratio increased [Unknown]
  - Blood potassium increased [Not Recovered/Not Resolved]
  - Aphonia [Unknown]
  - Anaemia [Unknown]
  - Blood count abnormal [Unknown]
  - Electrolyte imbalance [Unknown]
  - Haemoglobin decreased [Not Recovered/Not Resolved]
  - Red blood cell sedimentation rate increased [Not Recovered/Not Resolved]
  - Fluid retention [Recovering/Resolving]
  - Blood sodium decreased [Not Recovered/Not Resolved]
  - Drug interaction [Unknown]
  - Alanine aminotransferase increased [Not Recovered/Not Resolved]
  - Red blood cell count decreased [Not Recovered/Not Resolved]
  - Speech disorder [Unknown]
  - Haematocrit decreased [Not Recovered/Not Resolved]

NARRATIVE: CASE EVENT DATE: 201209
